APPROVED DRUG PRODUCT: ITRACONAZOLE
Active Ingredient: ITRACONAZOLE
Strength: 100MG
Dosage Form/Route: CAPSULE;ORAL
Application: A200463 | Product #001
Applicant: MYLAN PHARMACEUTICALS INC
Approved: Jul 20, 2012 | RLD: No | RS: No | Type: DISCN